FAERS Safety Report 5779594-X (Version None)
Quarter: 2008Q2

REPORT INFORMATION
  Report Type: 
  Country: None (occurrence: None)
  Receive Date: 20080619
  Receipt Date: 20080607
  Transmission Date: 20081010
  Serious: Yes (Life-Threatening)
  Sender: FDA-Public Use
  Company Number: ZA-PFIZER INC-2008048166

PATIENT
  Age: 53 Year
  Sex: Female

DRUGS (3)
  1. EPANUTIN SUSPENSION [Suspect]
     Indication: EPILEPSY
     Route: 042
  2. CARDIOVASCULAR SYSTEM DRUGS [Concomitant]
  3. EPANUTIN [Concomitant]
     Route: 048

REACTIONS (1)
  - CARDIAC ARREST [None]
